FAERS Safety Report 9823300 (Version 1)
Quarter: 2014Q1

REPORT INFORMATION
  Report Type: Spontaneous
  Country: FR (occurrence: FR)
  Receive Date: 20140116
  Receipt Date: 20140116
  Transmission Date: 20141002
  Serious: Yes (Hospitalization)
  Sender: FDA-Public Use
  Company Number: FR-WATSON-2013-24646

PATIENT
  Age: 57 Year
  Sex: Male

DRUGS (4)
  1. GLIMEPIRIDE [Suspect]
     Indication: TYPE 2 DIABETES MELLITUS
     Dosage: 3 MG, DAILY
     Route: 048
     Dates: start: 20130301, end: 20130320
  2. JANUMET [Suspect]
     Indication: TYPE 2 DIABETES MELLITUS
     Dosage: 1 DF, DAILY
     Route: 048
     Dates: start: 20130301
  3. ACETYLCYSTEINE [Suspect]
     Indication: INFLUENZA LIKE ILLNESS
     Dosage: 200 MG, TID
     Route: 048
     Dates: start: 20130301
  4. CLAMOXYL (AMOXICILLIN) [Suspect]
     Indication: INFLUENZA LIKE ILLNESS
     Dosage: 1 G, BID
     Route: 048
     Dates: start: 20130301

REACTIONS (3)
  - Immune thrombocytopenic purpura [Recovering/Resolving]
  - Haematoma [Recovered/Resolved]
  - Epistaxis [Recovered/Resolved]
